FAERS Safety Report 7751276-4 (Version None)
Quarter: 2011Q3

REPORT INFORMATION
  Report Type: 
  Country: None (occurrence: None)
  Receive Date: 20110912
  Receipt Date: 20110826
  Transmission Date: 20111222
  Serious: Yes (Death)
  Sender: FDA-Public Use
  Company Number: 2009AL005088

PATIENT
  Age: 72 Year
  Sex: Male
  Weight: 85.7298 kg

DRUGS (11)
  1. HYDROCODONE BITARTRATE AND ACETAMINOPHEN [Concomitant]
  2. HYDROCODONE [Concomitant]
  3. ZYMAR [Concomitant]
  4. ALPRAZOLAM [Concomitant]
  5. LIPITOR [Concomitant]
  6. DIAZEPAM [Concomitant]
  7. PAROXETINE HCL [Concomitant]
  8. AMOXICILLIN [Concomitant]
  9. TRICOR [Concomitant]
  10. CEFUROXIME AXETIL [Concomitant]
  11. DIGOXIN [Suspect]
     Indication: HEART RATE IRREGULAR
     Dosage: 0.25 MG;QD;PO
     Route: 048
     Dates: start: 20060505, end: 20070801

REACTIONS (10)
  - NAUSEA [None]
  - MYOCARDIAL INFARCTION [None]
  - VISION BLURRED [None]
  - DIABETES MELLITUS [None]
  - FATIGUE [None]
  - MULTIPLE INJURIES [None]
  - EMOTIONAL DISORDER [None]
  - UNEVALUABLE EVENT [None]
  - CARDIAC FAILURE CONGESTIVE [None]
  - ECONOMIC PROBLEM [None]
